FAERS Safety Report 9220885 (Version 1)
Quarter: 2013Q2

REPORT INFORMATION
  Report Type: Spontaneous
  Country: CA (occurrence: CA)
  Receive Date: 20130409
  Receipt Date: 20130409
  Transmission Date: 20140414
  Serious: Yes (Death)
  Sender: FDA-Public Use
  Company Number: CA-GLAXOSMITHKLINE-A1018969A

PATIENT
  Age: 72 Year
  Sex: Female

DRUGS (9)
  1. VOTRIENT [Suspect]
     Indication: SARCOMA
     Dosage: 800MG PER DAY
     Route: 048
     Dates: start: 20130204
  2. CITALOPRAM [Concomitant]
     Dosage: 20MG PER DAY
  3. FERROUS GLUCONATE [Concomitant]
  4. HYDROMORPHONE [Concomitant]
     Dosage: 1MG AS REQUIRED
  5. PROCHLORPERAZINE [Concomitant]
     Dosage: 1TAB THREE TIMES PER DAY
  6. METOPROLOL [Concomitant]
     Dosage: .5TAB TWICE PER DAY
  7. PANTOPRAZOLE [Concomitant]
     Dosage: 2TAB PER DAY
  8. LEVOTHYROXINE [Concomitant]
     Dosage: .15MG PER DAY
  9. DIAZEPAM [Concomitant]

REACTIONS (1)
  - Death [Fatal]
